FAERS Safety Report 19419284 (Version 1)
Quarter: 2021Q2

REPORT INFORMATION
  Report Type: Spontaneous
  Country: CN (occurrence: CN)
  Receive Date: 20210615
  Receipt Date: 20210615
  Transmission Date: 20210717
  Serious: Yes (Other)
  Sender: FDA-Public Use
  Company Number: CN-PFIZER INC-2021658775

PATIENT
  Age: 35 Year
  Sex: Female

DRUGS (3)
  1. CYTOSAR [Suspect]
     Active Substance: CYTARABINE
     Indication: LYMPHOMA
     Dosage: 1500 MG, 1X/DAY
     Route: 041
     Dates: start: 20210501, end: 20210502
  2. CISPLATIN. [Suspect]
     Active Substance: CISPLATIN
     Indication: LYMPHOMA
     Dosage: 160 MG, 1X/DAY
     Route: 041
     Dates: start: 20210430, end: 20210430
  3. HAN LI KANG [Suspect]
     Active Substance: RITUXIMAB
     Indication: LYMPHOMA
     Dosage: 800 MG, 1X/DAY
     Route: 041
     Dates: start: 20210429, end: 20210429

REACTIONS (5)
  - Abdominal pain [Recovering/Resolving]
  - Off label use [Unknown]
  - Abdominal distension [Recovering/Resolving]
  - Myelosuppression [Recovering/Resolving]
  - Constipation [Recovering/Resolving]

NARRATIVE: CASE EVENT DATE: 20210501
